FAERS Safety Report 20309623 (Version 1)
Quarter: 2022Q1

REPORT INFORMATION
  Report Type: Spontaneous
  Country: US (occurrence: None)
  Receive Date: 20220107
  Receipt Date: 20220107
  Transmission Date: 20220423
  Serious: Yes (Other)
  Sender: FDA-Public Use
  Company Number: None

PATIENT
  Age: 41 Year
  Sex: Female
  Weight: 119.25 kg

DRUGS (1)
  1. OZEMPIC [Suspect]
     Active Substance: SEMAGLUTIDE
     Indication: Insulin resistance
     Dates: start: 20210510, end: 20211031

REACTIONS (3)
  - Blood parathyroid hormone increased [None]
  - Hypoaesthesia [None]
  - Abdominal pain upper [None]

NARRATIVE: CASE EVENT DATE: 20210531
